FAERS Safety Report 17364756 (Version 51)
Quarter: 2023Q1

REPORT INFORMATION
  Report Type: Other
  Country: GB (occurrence: GB)
  Receive Date: 20200204
  Receipt Date: 20230125
  Transmission Date: 20230417
  Serious: Yes (Hospitalization, Other)
  Sender: FDA-Public Use
  Company Number: GB-EMA-DD-20200114-BISHT_P-110620

PATIENT
  Age: 7 Year
  Sex: Male

DRUGS (123)
  1. TRAMADOL [Suspect]
     Active Substance: TRAMADOL
     Indication: Product used for unknown indication
     Dosage: 50 MILLIGRAM, QD, 50 MILLIGRAM,(STRENGTH: 50 MG) (CAPSULE HARD)
     Route: 065
  2. TRAMADOL [Suspect]
     Active Substance: TRAMADOL
     Dosage: 100 MILLIGRAM, QD, 100 MILLIGRAM, (STRENGTH: 100 MG) (CAPSULE, HARD)
     Route: 065
  3. TRAMADOL [Suspect]
     Active Substance: TRAMADOL
     Dosage: UNK, CAPSULE HARD
     Route: 065
  4. TRAMADOL [Suspect]
     Active Substance: TRAMADOL
     Dosage: 100 MILLIGRAM, QD, 100 MILLIGRAM, (STRENGTH: 100 MG) (CAPSULE, HARD)
     Route: 065
  5. TRAMADOL [Suspect]
     Active Substance: TRAMADOL
     Dosage: 100 MILLIGRAM, QD, 100 MILLIGRAM, (STRENGTH: 100 MG) (CAPSULE, HARD)
     Route: 065
  6. TRAMADOL [Suspect]
     Active Substance: TRAMADOL
     Dosage: UNK, CAPSULE HARD
     Route: 065
  7. TRAMADOL [Suspect]
     Active Substance: TRAMADOL
     Dosage: 50 MILLIGRAM, QD, 50 MILLIGRAM,(STRENGTH: 50 MG) (CAPSULE HARD)
     Route: 065
  8. TRAMADOL [Suspect]
     Active Substance: TRAMADOL
     Dosage: 50 MILLIGRAM
     Route: 065
  9. TRAMADOL [Suspect]
     Active Substance: TRAMADOL
     Dosage: UNK
     Route: 065
  10. TRAMADOL [Suspect]
     Active Substance: TRAMADOL
     Dosage: 100 MILLIGRAM, QD, 100 MILLIGRAM, (STRENGTH: 100 MG) (CAPSULE, HARD)
     Route: 065
  11. TRAMADOL [Suspect]
     Active Substance: TRAMADOL
     Dosage: UNK
     Route: 065
  12. TRAMADOL [Suspect]
     Active Substance: TRAMADOL
     Dosage: 100 MILLIGRAM, QD, 100 MILLIGRAM, (STRENGTH: 100 MG) (CAPSULE, HARD)
     Route: 065
  13. TRAMADOL [Suspect]
     Active Substance: TRAMADOL
     Dosage: 50 MILLIGRAM, QD, 50 MILLIGRAM,(STRENGTH: 50 MG) (CAPSULE HARD)
     Route: 065
  14. TRAMADOL [Suspect]
     Active Substance: TRAMADOL
     Dosage: UNK
     Route: 065
  15. TRAMADOL [Suspect]
     Active Substance: TRAMADOL
     Dosage: UNK, STRENGTH 50 MG
     Route: 065
  16. TRAMADOL [Suspect]
     Active Substance: TRAMADOL
     Dosage: UNK, QD (MEDICATION ERROR)
     Route: 065
  17. TRAMADOL [Suspect]
     Active Substance: TRAMADOL
     Dosage: 50 MILLIGRAM (STRENGTH: 100 MG ) (CAPSULE)
     Route: 065
  18. TRAMADOL [Suspect]
     Active Substance: TRAMADOL
     Dosage: 100 MILLIGRAM, QD (CAPSULE)
     Route: 065
  19. TRAMADOL [Suspect]
     Active Substance: TRAMADOL
     Dosage: 100 MILLIGRAM
     Route: 065
  20. TRAMADOL [Suspect]
     Active Substance: TRAMADOL
     Dosage: 100 MILLIGRAM
     Route: 065
  21. TRAMADOL [Suspect]
     Active Substance: TRAMADOL
     Dosage: 50 MILLIGRAM
     Route: 065
  22. TRAMADOL [Suspect]
     Active Substance: TRAMADOL
     Dosage: UNK
     Route: 065
  23. TRAMADOL [Suspect]
     Active Substance: TRAMADOL
     Dosage: 50 MILLIGRAM
     Route: 065
  24. TRAMADOL [Suspect]
     Active Substance: TRAMADOL
     Dosage: 50 MILLIGRAM
     Route: 065
  25. TRAMADOL [Suspect]
     Active Substance: TRAMADOL
     Dosage: UNK
     Route: 065
  26. TRAMADOL [Suspect]
     Active Substance: TRAMADOL
     Dosage: 100 MILLIGRAM, QD, 100 MILLIGRAM, (STRENGTH: 100 MG) (CAPSULE, HARD)
     Route: 065
  27. TRAMADOL [Suspect]
     Active Substance: TRAMADOL
     Dosage: UNK
     Route: 065
  28. TRAMADOL [Suspect]
     Active Substance: TRAMADOL
     Dosage: UNK
     Route: 065
  29. TRAMADOL [Suspect]
     Active Substance: TRAMADOL
     Dosage: 50 MILLIGRAM
     Route: 065
  30. TRAMADOL [Suspect]
     Active Substance: TRAMADOL
     Dosage: 100 MILLIGRAM, QD, 100 MILLIGRAM, (STRENGTH: 100 MG) (CAPSULE, HARD)
     Route: 065
  31. VANCOMYCIN [Suspect]
     Active Substance: VANCOMYCIN
     Indication: Device related infection
     Dosage: UNK, POWDER FOR CONCENTRATE FOR SOLUTION FOR INFUSION
     Route: 042
  32. VANCOMYCIN [Suspect]
     Active Substance: VANCOMYCIN
     Indication: Bacteraemia
     Dosage: UNK
     Route: 065
  33. VANCOMYCIN [Suspect]
     Active Substance: VANCOMYCIN
     Dosage: UNK, POWDER FOR CONCENTRATE FOR SOLUTION FOR INFUSION
     Route: 065
  34. VANCOMYCIN [Suspect]
     Active Substance: VANCOMYCIN
     Dosage: UNK, POWDER FOR CONCENTRATE FOR SOLUTION FOR INFUSION
     Route: 042
  35. VANCOMYCIN [Suspect]
     Active Substance: VANCOMYCIN
     Dosage: UNK, POWDER FOR CONCENTRATE FOR SOLUTION FOR INFUSION
     Route: 065
  36. VANCOMYCIN [Suspect]
     Active Substance: VANCOMYCIN
     Dosage: UNK, POWDER FOR CONCENTRATE FOR SOLUTION FOR INFUSION
     Route: 042
  37. VANCOMYCIN [Suspect]
     Active Substance: VANCOMYCIN
     Dosage: UNK (POWDER FOR INJECTION) (DRUG TAKEN BEYOND EXPIRY DATE, MEDICATION ERROR, MISUSE, OFF LABEL USE)
     Route: 065
  38. LANSOPRAZOLE [Suspect]
     Active Substance: LANSOPRAZOLE
     Indication: Gastrooesophageal reflux disease
     Dosage: 15 MILLIGRAM, QD CAPSULE
     Route: 065
  39. LANSOPRAZOLE [Suspect]
     Active Substance: LANSOPRAZOLE
     Dosage: 2.5 MILLIGRAM, QD, CAPSULE
     Route: 065
  40. LANSOPRAZOLE [Suspect]
     Active Substance: LANSOPRAZOLE
     Dosage: 15 MILLIGRAM, QD CAPSULE
     Route: 065
  41. LANSOPRAZOLE [Suspect]
     Active Substance: LANSOPRAZOLE
     Dosage: 2.5 MILLIGRAM
     Route: 065
  42. LANSOPRAZOLE [Suspect]
     Active Substance: LANSOPRAZOLE
     Dosage: 15 MG, QD
     Route: 065
  43. LANSOPRAZOLE [Suspect]
     Active Substance: LANSOPRAZOLE
     Dosage: 15 MILLIGRAM, QD CAPSULE
     Route: 065
  44. LANSOPRAZOLE [Suspect]
     Active Substance: LANSOPRAZOLE
     Dosage: UNK
     Route: 065
  45. LANSOPRAZOLE [Suspect]
     Active Substance: LANSOPRAZOLE
     Dosage: 15 MILLIGRAM, QD CAPSULE
     Route: 065
  46. LANSOPRAZOLE [Suspect]
     Active Substance: LANSOPRAZOLE
     Dosage: 15 MILLIGRAM, QD CAPSULE
     Route: 065
  47. LANSOPRAZOLE [Suspect]
     Active Substance: LANSOPRAZOLE
     Dosage: UNK (STRENGTH: 2.5 MG)(DRUG TAKEN BEYOND EXPIRY DATE, MEDICATION ERROR, MISUSEUNK)
     Route: 065
  48. LANSOPRAZOLE [Suspect]
     Active Substance: LANSOPRAZOLE
     Dosage: 2.5 MILLIGRAM
     Route: 065
  49. LANSOPRAZOLE [Suspect]
     Active Substance: LANSOPRAZOLE
     Dosage: 2.5 MILLIGRAM
     Route: 065
  50. LANSOPRAZOLE [Suspect]
     Active Substance: LANSOPRAZOLE
     Dosage: 2.5 MILLIGRAM
     Route: 065
  51. LANSOPRAZOLE [Suspect]
     Active Substance: LANSOPRAZOLE
     Dosage: UNK
     Route: 065
  52. LANSOPRAZOLE [Suspect]
     Active Substance: LANSOPRAZOLE
     Dosage: 15 MG
     Route: 065
  53. LANSOPRAZOLE [Suspect]
     Active Substance: LANSOPRAZOLE
     Dosage: 2.5 MILLIGRAM, CAPSULE
     Route: 065
  54. LANSOPRAZOLE [Suspect]
     Active Substance: LANSOPRAZOLE
     Dosage: 2.5 MILLIGRAM, CAPSULE
     Route: 065
  55. LANSOPRAZOLE [Suspect]
     Active Substance: LANSOPRAZOLE
     Dosage: UNK, ADDITIONAL INFO: DRUG TAKEN BEYOND EXPIRY DATE, MEDICATION ERROR, MISUSEUNK, STRENGTH: 2.5 MG
     Route: 065
  56. ALFUZOSIN HYDROCHLORIDE [Suspect]
     Active Substance: ALFUZOSIN HYDROCHLORIDE
     Indication: Product used for unknown indication
     Dosage: 100 MILLIGRAM, QD
     Route: 065
  57. ALFUZOSIN HYDROCHLORIDE [Suspect]
     Active Substance: ALFUZOSIN HYDROCHLORIDE
     Dosage: 10 MILLIGRAM (10 MILLIGRAM, STRENGTH: 10 MG )(FILM COATED TABLET)
     Route: 065
  58. ALFUZOSIN HYDROCHLORIDE [Suspect]
     Active Substance: ALFUZOSIN HYDROCHLORIDE
     Dosage: 10 MILLIGRAM, QD (PROLONGED RELEASE TABLET)
     Route: 065
  59. ALFUZOSIN HYDROCHLORIDE [Suspect]
     Active Substance: ALFUZOSIN HYDROCHLORIDE
     Dosage: 1 DOSAGE FORM, QD
     Route: 065
  60. ALFUZOSIN HYDROCHLORIDE [Suspect]
     Active Substance: ALFUZOSIN HYDROCHLORIDE
     Dosage: 10 MILLIGRAM, QD, PROLONGED RELEASE TABLET)
     Route: 065
  61. ALFUZOSIN HYDROCHLORIDE [Suspect]
     Active Substance: ALFUZOSIN HYDROCHLORIDE
     Dosage: 10 MG, QD
     Route: 065
  62. ALFUZOSIN HYDROCHLORIDE [Suspect]
     Active Substance: ALFUZOSIN HYDROCHLORIDE
     Dosage: 10 MILLIGRAM, QD (PROLONGED RELEASE TABLET)
     Route: 065
  63. ALFUZOSIN HYDROCHLORIDE [Suspect]
     Active Substance: ALFUZOSIN HYDROCHLORIDE
     Dosage: 10 MILLIGRAM
     Route: 065
  64. ALFUZOSIN HYDROCHLORIDE [Suspect]
     Active Substance: ALFUZOSIN HYDROCHLORIDE
     Dosage: 10 MILLIGRAM
     Route: 065
  65. ALFUZOSIN HYDROCHLORIDE [Suspect]
     Active Substance: ALFUZOSIN HYDROCHLORIDE
     Dosage: 10 MILLIGRAM (PROLONGED RELEASE TABLET)
     Route: 065
  66. ALFUZOSIN HYDROCHLORIDE [Suspect]
     Active Substance: ALFUZOSIN HYDROCHLORIDE
     Dosage: 1 DOSAGE FORM, QD
     Route: 065
  67. ALFUZOSIN HYDROCHLORIDE [Suspect]
     Active Substance: ALFUZOSIN HYDROCHLORIDE
     Dosage: 10 MILLIGRAM
     Route: 065
  68. ALFUZOSIN HYDROCHLORIDE [Suspect]
     Active Substance: ALFUZOSIN HYDROCHLORIDE
     Dosage: 10 MG, QD
     Route: 065
  69. ALFUZOSIN HYDROCHLORIDE [Suspect]
     Active Substance: ALFUZOSIN HYDROCHLORIDE
     Dosage: UNK (STRENGTH: 10 MG;,ADDITIONAL INFO: DRUG TAKEN BEYOND EXPIRY DATE, MEDICATION ERROR, MISUSE   )
     Route: 065
  70. ALFUZOSIN HYDROCHLORIDE [Suspect]
     Active Substance: ALFUZOSIN HYDROCHLORIDE
     Dosage: 10 MG, QD
     Route: 065
  71. ALFUZOSIN HYDROCHLORIDE [Suspect]
     Active Substance: ALFUZOSIN HYDROCHLORIDE
     Dosage: 10 MILLIGRAM
     Route: 065
  72. ALFUZOSIN HYDROCHLORIDE [Suspect]
     Active Substance: ALFUZOSIN HYDROCHLORIDE
     Dosage: 1 DOSAGE FORM, QD
     Route: 065
  73. ALFUZOSIN HYDROCHLORIDE [Suspect]
     Active Substance: ALFUZOSIN HYDROCHLORIDE
     Dosage: UNK (STRENGTH: 10 MG;,ADDITIONAL INFO: DRUG TAKEN BEYOND EXPIRY DATE, MEDICATION ERROR, MISUSE   )
     Route: 065
  74. ALFUZOSIN HYDROCHLORIDE [Suspect]
     Active Substance: ALFUZOSIN HYDROCHLORIDE
     Dosage: UNK (STRENGTH: 10 MG;,ADDITIONAL INFO: DRUG TAKEN BEYOND EXPIRY DATE, MEDICATION ERROR, MISUSE   )
     Route: 065
  75. ALFUZOSIN HYDROCHLORIDE [Suspect]
     Active Substance: ALFUZOSIN HYDROCHLORIDE
     Dosage: 10 MILLIGRAM
     Route: 065
  76. ALFUZOSIN HYDROCHLORIDE [Suspect]
     Active Substance: ALFUZOSIN HYDROCHLORIDE
     Dosage: 10 MILLIGRAM
     Route: 065
  77. ALFUZOSIN HYDROCHLORIDE [Suspect]
     Active Substance: ALFUZOSIN HYDROCHLORIDE
     Dosage: 10 MILLIGRAM
     Route: 065
  78. BISOPROLOL [Interacting]
     Active Substance: BISOPROLOL
     Indication: Product used for unknown indication
     Dosage: 2.5 MILLIGRAM, QD
     Route: 065
  79. BISOPROLOL [Interacting]
     Active Substance: BISOPROLOL
     Dosage: 2.5 MG (2.5 MILLIGRAM, STRENGTH: 2.5 MG,DRUG TAKEN BEYOND EXPIRY DATE, MEDICATION ERROR, MISUSE, OFF
     Route: 065
  80. BISOPROLOL [Interacting]
     Active Substance: BISOPROLOL
     Dosage: 2.5 MILLIGRAM, STRENGTH: 2.5 MG
     Route: 065
  81. BISOPROLOL [Interacting]
     Active Substance: BISOPROLOL
     Dosage: 2.5 MILLIGRAM, QD
     Route: 065
  82. BISOPROLOL [Interacting]
     Active Substance: BISOPROLOL
     Dosage: 2.5 MILLIGRAM, QD
     Route: 065
  83. BISOPROLOL [Interacting]
     Active Substance: BISOPROLOL
     Dosage: 2.5 MILLIGRAM, STRENGTH: 2.5 MG
     Route: 065
  84. BISOPROLOL [Interacting]
     Active Substance: BISOPROLOL
     Dosage: 2.5 MILLIGRAM, QD
     Route: 065
  85. BISOPROLOL [Interacting]
     Active Substance: BISOPROLOL
     Dosage: 2.5 MILLIGRAM, STRENGTH: 2.5 MG
     Route: 065
  86. BISOPROLOL [Interacting]
     Active Substance: BISOPROLOL
     Dosage: 2.5 MILLIGRAM, QD
     Route: 065
  87. BISOPROLOL [Interacting]
     Active Substance: BISOPROLOL
     Dosage: 2.5 MILLIGRAM, QD
     Route: 065
  88. BISOPROLOL [Interacting]
     Active Substance: BISOPROLOL
     Dosage: 2.5 MG (2.5 MILLIGRAM, STRENGTH: 2.5 MG,DRUG TAKEN BEYOND EXPIRY DATE, MEDICATION ERROR, MISUSE, OFF
     Route: 065
  89. DUTASTERIDE [Suspect]
     Active Substance: DUTASTERIDE
     Indication: Product used for unknown indication
     Dosage: 500 MCG, QD
     Route: 065
  90. DUTASTERIDE [Suspect]
     Active Substance: DUTASTERIDE
     Dosage: 500 MCG, QD (500 MICROGRAM, STRENGTH: 500 MCG, DRUG TAKEN BEYOND EXPIRY DATE, MEDICATION ERROR, MISU
     Route: 065
  91. DUTASTERIDE [Suspect]
     Active Substance: DUTASTERIDE
     Dosage: 500 MCG, QD (500 MICROGRAM, STRENGTH: 500 MCG, DRUG TAKEN BEYOND EXPIRY DATE, MEDICATION ERROR, MISU
     Route: 065
  92. DUTASTERIDE [Suspect]
     Active Substance: DUTASTERIDE
     Dosage: 500 MCG, (500 MICROGRAM, STRENGTH: 500 MCG, DRUG TAKEN BEYOND EXPIRY DATE, MEDICATION ERROR, MISUS)
     Route: 065
  93. DUTASTERIDE [Suspect]
     Active Substance: DUTASTERIDE
     Dosage: 500 MCG, QD (500 MICROGRAM, STRENGTH: 500 MCG, DRUG TAKEN BEYOND EXPIRY DATE, MEDICATION ERROR, MISU
     Route: 065
  94. DUTASTERIDE [Suspect]
     Active Substance: DUTASTERIDE
     Dosage: 500 MCG, QD (500 MICROGRAM, STRENGTH: 500 MCG, DRUG TAKEN BEYOND EXPIRY DATE, MEDICATION ERROR, MISU
     Route: 065
  95. DUTASTERIDE [Suspect]
     Active Substance: DUTASTERIDE
     Dosage: 500 MCG, QD (500 MICROGRAM, STRENGTH: 500 MCG, DRUG TAKEN BEYOND EXPIRY DATE, MEDICATION ERROR, MISU
     Route: 065
  96. DUTASTERIDE [Suspect]
     Active Substance: DUTASTERIDE
     Dosage: 500 MCG, QD (500 MICROGRAM, STRENGTH: 500 MCG, DRUG TAKEN BEYOND EXPIRY DATE, MEDICATION ERROR, MISU
     Route: 065
  97. DUTASTERIDE [Suspect]
     Active Substance: DUTASTERIDE
     Dosage: 500 MCG, QD (500 MICROGRAM, STRENGTH: 500 MCG, DRUG TAKEN BEYOND EXPIRY DATE, MEDICATION ERROR, MISU
     Route: 065
  98. DUTASTERIDE [Suspect]
     Active Substance: DUTASTERIDE
     Dosage: 500 MCG, QD (500 MICROGRAM, STRENGTH: 500 MCG, DRUG TAKEN BEYOND EXPIRY DATE, MEDICATION ERROR, MISU
     Route: 065
  99. DUTASTERIDE [Suspect]
     Active Substance: DUTASTERIDE
     Dosage: 500 MCG, STRENGTH: 500 MCG, DRUG TAKEN BEYOND EXPIRY DATE, MEDICATION ERROR, MISUSE, OFF LABEL
     Route: 065
  100. DUTASTERIDE [Suspect]
     Active Substance: DUTASTERIDE
     Dosage: 500 MCG, QD (500 MICROGRAM, STRENGTH: 500 MCG, DRUG TAKEN BEYOND EXPIRY DATE, MEDICATION ERROR, MISU
     Route: 065
  101. DUTASTERIDE [Suspect]
     Active Substance: DUTASTERIDE
     Dosage: 500 MCG, QD, ONCE A DAY (CAPSULE, SOFT)
     Route: 065
  102. DUTASTERIDE [Suspect]
     Active Substance: DUTASTERIDE
     Dosage: 500 MCG, QD (500 MICROGRAM, STRENGTH: 500 MCG, DRUG TAKEN BEYOND EXPIRY DATE, MEDICATION ERROR, MISU
     Route: 065
  103. DUTASTERIDE [Suspect]
     Active Substance: DUTASTERIDE
     Dosage: 500 MCG, QD, ONCE A DAY (CAPSULE, SOFT)
     Route: 065
  104. TRAMADOL [Suspect]
     Active Substance: TRAMADOL
     Indication: Product used for unknown indication
     Dosage: UNK
     Route: 065
  105. TRAMADOL [Suspect]
     Active Substance: TRAMADOL
     Dosage: UNK
     Route: 065
  106. TRAMADOL [Suspect]
     Active Substance: TRAMADOL
     Dosage: 100 MG, QD
     Route: 065
  107. TRAMADOL [Suspect]
     Active Substance: TRAMADOL
     Dosage: 50 MG, QD
     Route: 065
  108. TRAMADOL [Suspect]
     Active Substance: TRAMADOL
     Dosage: UNK
     Route: 065
  109. TRAMADOL [Suspect]
     Active Substance: TRAMADOL
     Dosage: UNK
     Route: 065
  110. TRAMADOL [Suspect]
     Active Substance: TRAMADOL
     Dosage: UNK
     Route: 065
  111. TRAMADOL [Suspect]
     Active Substance: TRAMADOL
     Dosage: UNK
     Route: 065
  112. LANSOPRAZOLE [Suspect]
     Active Substance: LANSOPRAZOLE
     Indication: Product used for unknown indication
     Dosage: 15 MILLIGRAM, QD
     Route: 065
  113. LANSOPRAZOLE [Suspect]
     Active Substance: LANSOPRAZOLE
     Dosage: 15 MILLIGRAM, QD
     Route: 065
  114. LANSOPRAZOLE [Suspect]
     Active Substance: LANSOPRAZOLE
     Dosage: 2.5 MILLIGRAM, QD
     Route: 065
  115. DAPTOMYCIN [Suspect]
     Active Substance: DAPTOMYCIN
     Indication: Device related infection
     Dosage: UNK
     Route: 042
  116. DAPTOMYCIN [Suspect]
     Active Substance: DAPTOMYCIN
     Indication: Bacteraemia
     Dosage: UNK
     Route: 042
  117. DAPTOMYCIN [Suspect]
     Active Substance: DAPTOMYCIN
     Dosage: UNK (INJECTION)
     Route: 042
  118. DAPTOMYCIN [Suspect]
     Active Substance: DAPTOMYCIN
     Dosage: UNK (POWDER FOR INJECTION)
     Route: 042
  119. DAPTOMYCIN [Suspect]
     Active Substance: DAPTOMYCIN
     Dosage: UNK (POWDER FOR INJECTION)
     Route: 042
  120. DAPTOMYCIN [Suspect]
     Active Substance: DAPTOMYCIN
     Dosage: UNK (POWDER FOR INJECTION)
     Route: 042
  121. DAPTOMYCIN [Suspect]
     Active Substance: DAPTOMYCIN
     Dosage: UNK (INJECTION)
     Route: 042
  122. DAPTOMYCIN [Suspect]
     Active Substance: DAPTOMYCIN
     Dosage: 120 DOSAGE FORM, INJECTION
     Route: 042
  123. LINEZOLID [Concomitant]
     Active Substance: LINEZOLID
     Indication: Product used for unknown indication
     Dosage: UNK
     Route: 065

REACTIONS (16)
  - Malaise [Unknown]
  - Lower respiratory tract infection [Unknown]
  - Minimum inhibitory concentration [Unknown]
  - Therapeutic response delayed [Unknown]
  - Expired product administered [Unknown]
  - Product administration error [Unknown]
  - Product dispensing error [Unknown]
  - Product storage error [Unknown]
  - Wrong patient received product [Unknown]
  - Drug dispensed to wrong patient [Unknown]
  - Wrong product administered [Unknown]
  - Therapy non-responder [Unknown]
  - Drug ineffective for unapproved indication [Unknown]
  - Antimicrobial susceptibility test resistant [Unknown]
  - Intentional product misuse [Unknown]
  - Off label use [Unknown]
